FAERS Safety Report 10956378 (Version 2)
Quarter: 2015Q2

REPORT INFORMATION
  Report Type: Spontaneous
  Country: IT (occurrence: IT)
  Receive Date: 20150326
  Receipt Date: 20150417
  Transmission Date: 20150821
  Serious: Yes (Hospitalization)
  Sender: FDA-Public Use
  Company Number: IT-SA-2015SA035778

PATIENT
  Age: 87 Year
  Sex: Female

DRUGS (10)
  1. AUGMENTIN [Suspect]
     Active Substance: AMOXICILLIN\CLAVULANATE POTASSIUM
     Indication: THROMBOSIS PROPHYLAXIS
     Route: 048
     Dates: start: 20150211, end: 20150212
  2. CEFAMEZIN [Suspect]
     Active Substance: CEFAZOLIN
     Indication: ANTIBIOTIC PROPHYLAXIS
     Route: 042
     Dates: start: 20150210, end: 20150210
  3. ALTIAZEM [Concomitant]
     Active Substance: DILTIAZEM HYDROCHLORIDE
  4. LORTAAN [Concomitant]
     Active Substance: LOSARTAN POTASSIUM
  5. LASIX [Concomitant]
     Active Substance: FUROSEMIDE
     Dosage: VIALS
  6. CLEXANE [Suspect]
     Active Substance: ENOXAPARIN SODIUM
     Indication: THROMBOSIS PROPHYLAXIS
     Dosage: DOSE:4000 UNIT(S)
     Route: 058
     Dates: start: 20150210, end: 20150301
  7. KLACID [Suspect]
     Active Substance: CLARITHROMYCIN
     Indication: THROMBOSIS PROPHYLAXIS
     Route: 048
     Dates: start: 20150212, end: 20150215
  8. CARDIOASPIRIN [Concomitant]
     Active Substance: ASPIRIN
  9. ZOLOFT [Concomitant]
     Active Substance: SERTRALINE HYDROCHLORIDE
     Dosage: DOSE: 1 UNIT DOSAGE
  10. TAVOR [Concomitant]
     Active Substance: LORAZEPAM

REACTIONS (4)
  - Sopor [Recovered/Resolved]
  - Dehydration [Recovered/Resolved]
  - Renal failure [Recovered/Resolved]
  - Diarrhoea [Recovered/Resolved]

NARRATIVE: CASE EVENT DATE: 20150212
